FAERS Safety Report 11558303 (Version 2)
Quarter: 2015Q4

REPORT INFORMATION
  Report Type: Spontaneous
  Country: FR (occurrence: FR)
  Receive Date: 20150928
  Receipt Date: 20151202
  Transmission Date: 20160304
  Serious: Yes (Other)
  Sender: FDA-Public Use
  Company Number: FR-UCBSA-2015030279

PATIENT
  Age: 0 Year
  Sex: Male
  Weight: 2.3 kg

DRUGS (3)
  1. URBANYL [Concomitant]
     Active Substance: CLOBAZAM
     Indication: SEIZURE
     Dosage: 10 MG, AS NEEDED (PRN)
     Route: 064
     Dates: start: 20130814, end: 20140414
  2. ZEBINIX [Concomitant]
     Active Substance: ESLICARBAZEPINE ACETATE
     Indication: PRODUCT USED FOR UNKNOWN INDICATION
     Dosage: 1600 MG, DAILY
     Route: 064
     Dates: start: 20130814, end: 20140414
  3. KEPPRA [Suspect]
     Active Substance: LEVETIRACETAM
     Indication: EPILEPSY
     Dosage: 1000 MG, DAILY
     Route: 064
     Dates: start: 20130823, end: 20140414

REACTIONS (2)
  - Low birth weight baby [Recovered/Resolved]
  - Foetal exposure during pregnancy [Unknown]

NARRATIVE: CASE EVENT DATE: 20130823
